FAERS Safety Report 7635252-8 (Version None)
Quarter: 2011Q3

REPORT INFORMATION
  Report Type: 
  Country: None (occurrence: None)
  Receive Date: 20110726
  Receipt Date: 20110718
  Transmission Date: 20111222
  Serious: Yes (Hospitalization, Other)
  Sender: FDA-Public Use
  Company Number: US-BAYER-201034505NA

PATIENT
  Age: 18 Year
  Sex: Female
  Weight: 73 kg

DRUGS (2)
  1. YAZ [Suspect]
     Indication: PREMENSTRUAL SYNDROME
  2. YAZ [Suspect]
     Indication: CONTRACEPTION
     Dosage: UNK UNK, UNK
     Route: 048
     Dates: start: 20080701, end: 20100301

REACTIONS (4)
  - FATIGUE [None]
  - DYSPNOEA [None]
  - PULMONARY EMBOLISM [None]
  - RESPIRATORY TRACT CONGESTION [None]
